FAERS Safety Report 7442097 (Version 2)
Quarter: 2014Q1

REPORT INFORMATION
  Report Type: Spontaneous
  Country: US (occurrence: US)
  Receive Date: 20100628
  Receipt Date: 20140205
  Transmission Date: 20141002
  Serious: No
  Sender: FDA-Public Use
  Company Number: US-BIOGENIDEC-2010BI020656

PATIENT
  Sex: Female

DRUGS (4)
  1. AVONEX [Suspect]
     Indication: MULTIPLE SCLEROSIS
     Route: 030
     Dates: start: 19990120
  2. AVONEX [Suspect]
     Indication: MULTIPLE SCLEROSIS
     Route: 030
     Dates: start: 20000120
  3. AVONEX [Suspect]
     Indication: MULTIPLE SCLEROSIS
     Route: 030
     Dates: start: 20000501
  4. AVONEX [Suspect]
     Indication: MULTIPLE SCLEROSIS
     Route: 030
     Dates: end: 20140103

REACTIONS (4)
  - Dysarthria [Recovered/Resolved]
  - Drooling [Recovered/Resolved]
  - Aphasia [Recovered/Resolved]
  - Abasia [Recovered/Resolved]
